FAERS Safety Report 23850886 (Version 1)
Quarter: 2024Q2

REPORT INFORMATION
  Report Type: Spontaneous
  Country: US (occurrence: US)
  Receive Date: 20240514
  Receipt Date: 20240514
  Transmission Date: 20240716
  Serious: No
  Sender: FDA-Public Use
  Company Number: US-AMGEN-USASP2024091285

PATIENT
  Sex: Male

DRUGS (4)
  1. LUMAKRAS [Suspect]
     Active Substance: SOTORASIB
     Indication: Product used for unknown indication
     Dosage: 960 MILLIGRAM
     Route: 065
  2. LUMAKRAS [Suspect]
     Active Substance: SOTORASIB
     Dosage: UNK, DOSE REDUCTION
     Route: 065
  3. LUMAKRAS [Suspect]
     Active Substance: SOTORASIB
     Dosage: UNK, DOSE REDUCTION
     Route: 065
  4. ADAGRASIB [Concomitant]
     Active Substance: ADAGRASIB

REACTIONS (1)
  - Gastrointestinal disorder [Unknown]
